FAERS Safety Report 9493261 (Version 1)
Quarter: 2013Q3

REPORT INFORMATION
  Report Type: Spontaneous
  Country: GB (occurrence: GB)
  Receive Date: 20130902
  Receipt Date: 20130902
  Transmission Date: 20140515
  Serious: Yes (Hospitalization)
  Sender: FDA-Public Use
  Company Number: PHFR2013GB004971

PATIENT
  Sex: Male

DRUGS (2)
  1. CLOZARIL [Suspect]
     Indication: SCHIZOPHRENIA
     Dosage: UNK UKN, UNK
     Route: 048
     Dates: start: 20050411
  2. CLOZARIL [Suspect]
     Dosage: 325 MG, UNK
     Route: 048

REACTIONS (3)
  - Chest pain [Unknown]
  - Sedation [Unknown]
  - Antipsychotic drug level increased [Unknown]
